FAERS Safety Report 7763510-5 (Version None)
Quarter: 2011Q3

REPORT INFORMATION
  Report Type: 
  Country: None (occurrence: None)
  Receive Date: 20110920
  Receipt Date: 20110913
  Transmission Date: 20111222
  Serious: Yes (Other)
  Sender: FDA-Public Use
  Company Number: PHEH2011US03579

PATIENT
  Sex: Male

DRUGS (1)
  1. EXJADE [Suspect]
     Dosage: 1750 MG, QD
     Dates: start: 20110827

REACTIONS (5)
  - DIARRHOEA [None]
  - SWELLING FACE [None]
  - OEDEMA MOUTH [None]
  - MOOD DISORDER DUE TO A GENERAL MEDICAL CONDITION [None]
  - RENAL DISORDER [None]
